FAERS Safety Report 7862217-3 (Version None)
Quarter: 2011Q4

REPORT INFORMATION
  Report Type: 
  Country: None (occurrence: None)
  Receive Date: 20111026
  Receipt Date: 20111017
  Transmission Date: 20120403
  Serious: Yes (Other)
  Sender: FDA-Public Use
  Company Number: 2011SP047061

PATIENT
  Age: 61 Year
  Sex: Male
  Weight: 80 kg

DRUGS (1)
  1. NASONEX [Suspect]
     Indication: RHINITIS ALLERGIC
     Dosage: QD;NAS
     Route: 045
     Dates: start: 20060101

REACTIONS (3)
  - TINNITUS [None]
  - BLOOD CHOLESTEROL INCREASED [None]
  - DEAFNESS [None]
